FAERS Safety Report 16150880 (Version 3)
Quarter: 2019Q2

REPORT INFORMATION
  Report Type: Report from Study
  Country: US (occurrence: US)
  Receive Date: 20190402
  Receipt Date: 20190627
  Transmission Date: 20190711
  Serious: Yes (Other)
  Sender: FDA-Public Use
  Company Number: US-SA-2019SA087442

PATIENT
  Age: 36 Year
  Sex: Male

DRUGS (1)
  1. TERIFLUNOMIDE. [Suspect]
     Active Substance: TERIFLUNOMIDE
     Indication: MULTIPLE SCLEROSIS
     Dosage: 14 MG, QD
     Route: 048
     Dates: start: 20181213, end: 201903

REACTIONS (4)
  - Feeling abnormal [Unknown]
  - Multiple sclerosis relapse [Unknown]
  - Alopecia [Unknown]
  - Somnolence [Unknown]
